FAERS Safety Report 4285609-0 (Version None)
Quarter: 2004Q1

REPORT INFORMATION
  Report Type: 
  Country: None (occurrence: None)
  Receive Date: 20040203
  Receipt Date: 20040121
  Transmission Date: 20041129
  Serious: Yes (Death)
  Sender: FDA-Public Use
  Company Number: 04H-056-0246706-00

PATIENT
  Age: 34 Year
  Sex: Male
  Weight: 70 kg

DRUGS (3)
  1. ENFLURANE [Suspect]
     Indication: ANAESTHESIA
     Dates: start: 20030101
  2. PROPOFOL [Suspect]
  3. SUXAMETHONIUM [Suspect]

REACTIONS (1)
  - CARDIAC ARREST [None]
